FAERS Safety Report 9956368 (Version 2)
Quarter: 2014Q1

REPORT INFORMATION
  Report Type: Report from Study
  Country: RU (occurrence: RU)
  Receive Date: 20140304
  Receipt Date: 20140304
  Transmission Date: 20141002
  Serious: Yes (Death)
  Sender: FDA-Public Use
  Company Number: RU-BRISTOL-MYERS SQUIBB COMPANY-19895812

PATIENT
  Age: 62 Year
  Sex: Male

DRUGS (4)
  1. BLINDED: IPILIMUMAB [Suspect]
     Indication: NON-SMALL CELL LUNG CANCER
     Route: 042
     Dates: start: 20131001, end: 20131112
  2. PACLITAXEL [Suspect]
     Indication: NON-SMALL CELL LUNG CANCER
     Route: 042
     Dates: start: 20130820, end: 20131112
  3. CARBOPLATIN [Suspect]
     Indication: NON-SMALL CELL LUNG CANCER
     Dosage: 1DF = AUC6
     Route: 042
     Dates: start: 20130820, end: 20131112
  4. BLINDED: PLACEBO [Suspect]
     Indication: NON-SMALL CELL LUNG CANCER
     Route: 042
     Dates: start: 20131001, end: 20131112

REACTIONS (2)
  - Sudden death [Fatal]
  - Malignant neoplasm progression [Fatal]
